FAERS Safety Report 5489274-6 (Version None)
Quarter: 2007Q4

REPORT INFORMATION
  Report Type: 
  Country: None (occurrence: None)
  Receive Date: 20071018
  Receipt Date: 20071011
  Transmission Date: 20080405
  Serious: Yes (Death, Other)
  Sender: FDA-Public Use
  Company Number: US-AVENTIS-200713022US

PATIENT
  Sex: Female
  Weight: 55 kg

DRUGS (10)
  1. LOVENOX [Suspect]
     Dosage: DOSE: UNK
     Route: 042
     Dates: start: 20070425, end: 20070425
  2. INTEGRILIN [Suspect]
     Dosage: DOSE: UNK
     Dates: start: 20070401
  3. PLAVIX [Concomitant]
     Dates: start: 20070401
  4. AGGRASTAT [Concomitant]
     Dosage: DOSE: 1.0 UG/KG/MIN
     Route: 042
     Dates: start: 20070505, end: 20070505
  5. LEVOPHED [Concomitant]
     Route: 042
     Dates: start: 20070505, end: 20070505
  6. LEVOPHED [Concomitant]
     Route: 042
     Dates: start: 20070505, end: 20070505
  7. PROPOFOL [Concomitant]
     Dosage: DOSE QUANTITY: 30.0; DOSE UNIT: MILLIGRAM PER HOUR
     Route: 042
     Dates: start: 20070505, end: 20070505
  8. POTASSIUM DRIP [Concomitant]
     Route: 042
     Dates: start: 20070505, end: 20070505
  9. OMNIPAQUE 350 [Concomitant]
  10. MORPHINE [Concomitant]
     Dosage: DOSE: UNK
     Route: 042
     Dates: end: 20070505

REACTIONS (3)
  - DEATH [None]
  - STENT OCCLUSION [None]
  - THROMBOSIS [None]
